FAERS Safety Report 15857400 (Version 3)
Quarter: 2019Q1

REPORT INFORMATION
  Report Type: Spontaneous
  Country: US (occurrence: US)
  Receive Date: 20190123
  Receipt Date: 20190327
  Transmission Date: 20190417
  Serious: No
  Sender: FDA-Public Use
  Company Number: US-BAYER-2019-013578

PATIENT
  Age: 26 Year
  Sex: Female
  Weight: 70.9 kg

DRUGS (2)
  1. MIRENA [Suspect]
     Active Substance: LEVONORGESTREL
     Indication: INTRA-UTERINE CONTRACEPTIVE DEVICE INSERTION
  2. MIRENA [Suspect]
     Active Substance: LEVONORGESTREL
     Indication: INTRA-UTERINE CONTRACEPTIVE DEVICE INSERTION
     Dosage: 20 MCG/24HR, CONT
     Route: 015
     Dates: start: 20181030, end: 20181225

REACTIONS (5)
  - Device expulsion [Recovered/Resolved]
  - Device issue [Recovered/Resolved]
  - Vaginal haemorrhage [Recovered/Resolved]
  - Abdominal pain lower [None]
  - Nausea [None]

NARRATIVE: CASE EVENT DATE: 20181225
